FAERS Safety Report 19866471 (Version 1)
Quarter: 2021Q3

REPORT INFORMATION
  Report Type: Spontaneous
  Country: BR (occurrence: BR)
  Receive Date: 20210921
  Receipt Date: 20210921
  Transmission Date: 20211014
  Serious: Yes (Other)
  Sender: FDA-Public Use
  Company Number: NVSC2019BR010633

PATIENT
  Age: 68 Year
  Sex: Female
  Weight: 74 kg

DRUGS (3)
  1. TRAVATAN [Suspect]
     Active Substance: TRAVOPROST
     Indication: GLAUCOMA
     Dosage: 1 DRP, QD (1 DROP IN EACH EYE AT 10 PM)
     Route: 047
     Dates: start: 20191030
  2. TIMOLOL MALEATE. [Concomitant]
     Active Substance: TIMOLOL MALEATE
     Indication: GLAUCOMA
     Dosage: 1 DRP, Q12H (1 DROP IN EACH EYE EVERY 12 HRS.))
     Route: 047
     Dates: start: 20191030
  3. DUOTRAV BAC?FREE [Suspect]
     Active Substance: TIMOLOL\TRAVOPROST
     Indication: GLAUCOMA
     Dosage: 1 DRP, QD (1 DROP OF 2.5 IN EACH EYE AT 10 PM)
     Route: 047
     Dates: start: 2017, end: 20191103

REACTIONS (7)
  - Intraocular pressure increased [Recovered/Resolved]
  - Asthenopia [Not Recovered/Not Resolved]
  - Head discomfort [Recovered/Resolved]
  - Vitamin D decreased [Unknown]
  - Nervousness [Recovered/Resolved]
  - Vision blurred [Recovered/Resolved]
  - Fall [Recovered/Resolved]

NARRATIVE: CASE EVENT DATE: 20191008
